FAERS Safety Report 6204475-7 (Version None)
Quarter: 2009Q2

REPORT INFORMATION
  Report Type: 
  Country: None (occurrence: None)
  Receive Date: 20090527
  Receipt Date: 20090518
  Transmission Date: 20091009
  Serious: Yes (Hospitalization)
  Sender: FDA-Public Use
  Company Number: FI-PFIZER INC-2009193572

PATIENT
  Age: 47 Year

DRUGS (3)
  1. LYRICA [Suspect]
     Indication: ANXIETY
     Dosage: UNK
     Route: 048
     Dates: start: 20090131, end: 20090320
  2. CIPRALEX [Concomitant]
     Dosage: 20 MG, UNK
     Route: 048
  3. MIRTAZAPINE [Concomitant]
     Dosage: 30 MG, UNK
     Route: 048

REACTIONS (4)
  - CONFUSIONAL STATE [None]
  - EUPHORIC MOOD [None]
  - HYPOMANIA [None]
  - INCOHERENT [None]
